FAERS Safety Report 6056794-5 (Version None)
Quarter: 2009Q1

REPORT INFORMATION
  Report Type: 
  Country: None (occurrence: None)
  Receive Date: 20090126
  Receipt Date: 20090107
  Transmission Date: 20090719
  Serious: Yes (Death)
  Sender: FDA-Public Use
  Company Number: B0553714A

PATIENT
  Age: 92 Year
  Sex: Female

DRUGS (7)
  1. DIGOXIN [Suspect]
     Dosage: ORAL
     Route: 048
  2. HYDROCHLOROTHIAZIDE [Suspect]
  3. METOPROLOL TARTRATE [Suspect]
  4. FRUSEMIDE (FORMULATION UNKNOWN) (FUROSEMIDE) [Suspect]
  5. WARFARIN SODIUM [Suspect]
  6. VALSARTAN [Suspect]
  7. DONEPEZIL HCL [Suspect]

REACTIONS (1)
  - INTENTIONAL DRUG MISUSE [None]
